FAERS Safety Report 4520321-1 (Version None)
Quarter: 2004Q4

REPORT INFORMATION
  Report Type: 
  Country: None (occurrence: None)
  Receive Date: 20041207
  Receipt Date: 20041111
  Transmission Date: 20050328
  Serious: Yes (Hospitalization)
  Sender: FDA-Public Use
  Company Number: US-GLAXOSMITHKLINE-A0533637A

PATIENT
  Age: 78 Year
  Sex: Male

DRUGS (3)
  1. TOPOTECAN [Suspect]
     Indication: NON-SMALL CELL LUNG CANCER
     Route: 042
     Dates: start: 20040804
  2. TAXOTERE [Suspect]
     Indication: NON-SMALL CELL LUNG CANCER
     Route: 042
     Dates: start: 20040804
  3. ZOLOFT [Concomitant]
     Indication: DEPRESSION
     Dosage: 50MG PER DAY
     Route: 048

REACTIONS (5)
  - FEBRILE NEUTROPENIA [None]
  - HAEMATEMESIS [None]
  - HYPOTENSION [None]
  - PANCYTOPENIA [None]
  - THROMBOCYTOPENIA [None]
